FAERS Safety Report 18245506 (Version 1)
Quarter: 2020Q3

REPORT INFORMATION
  Report Type: Spontaneous
  Country: US (occurrence: US)
  Receive Date: 20200909
  Receipt Date: 20200909
  Transmission Date: 20201103
  Serious: Yes (Disabling)
  Sender: FDA-Public Use
  Company Number: None

PATIENT
  Age: 33 Year
  Sex: Female
  Weight: 51.75 kg

DRUGS (5)
  1. CREON [Concomitant]
     Active Substance: PANCRELIPASE AMYLASE\PANCRELIPASE LIPASE\PANCRELIPASE PROTEASE
  2. TRIKAFTA [Suspect]
     Active Substance: ELEXACAFTOR\IVACAFTOR\TEZACAFTOR
     Indication: CYSTIC FIBROSIS
     Dates: start: 20191113
  3. PULMOZYME [Concomitant]
     Active Substance: DORNASE ALFA
  4. STARLIX [Concomitant]
     Active Substance: NATEGLINIDE
  5. ALBUTERNOL [Concomitant]

REACTIONS (2)
  - Blepharitis [None]
  - Acne [None]

NARRATIVE: CASE EVENT DATE: 20191115
